FAERS Safety Report 5576888-8 (Version None)
Quarter: 2007Q4

REPORT INFORMATION
  Report Type: 
  Country: None (occurrence: None)
  Receive Date: 20071228
  Receipt Date: 20071218
  Transmission Date: 20080405
  Serious: Yes (Life-Threatening)
  Sender: FDA-Public Use
  Company Number: GB-RANBAXY-2007RR-12155

PATIENT

DRUGS (2)
  1. RISPERIDONE [Suspect]
     Indication: BIPOLAR DISORDER
     Dosage: 5 MG, UNK
     Route: 048
     Dates: start: 20070901, end: 20071001
  2. VALPROATE DE SODIUM RPG LP 500MG COMPRIME PELLICULE SECABLE A LIBERATI [Suspect]
     Indication: BIPOLAR DISORDER
     Dosage: 1500 MG, UNK
     Route: 048
     Dates: start: 20070901, end: 20071001

REACTIONS (2)
  - ALANINE AMINOTRANSFERASE INCREASED [None]
  - HEPATITIS [None]
